FAERS Safety Report 4900085-X (Version None)
Quarter: 2006Q1

REPORT INFORMATION
  Report Type: 
  Country: None (occurrence: None)
  Receive Date: 20060201
  Receipt Date: 20060110
  Transmission Date: 20060701
  Serious: Yes (Hospitalization)
  Sender: FDA-Public Use
  Company Number: US200512003961

PATIENT
  Age: 36 Year
  Sex: Female
  Weight: 82.1 kg

DRUGS (5)
  1. TERIPARATIDE (TERIPARATIDE) PEN, DISPOSABLE [Suspect]
     Indication: OSTEOPOROSIS
     Dosage: SUBCUTANEOUS
     Route: 058
  2. FORTEO PEN (FORTEO PEN) [Concomitant]
  3. ACTIGALL [Concomitant]
  4. INDERAL [Concomitant]
  5. VITAMIN D [Concomitant]

REACTIONS (5)
  - AXILLARY VEIN THROMBOSIS [None]
  - DEEP VEIN THROMBOSIS [None]
  - IMMOBILE [None]
  - PERITONITIS BACTERIAL [None]
  - SMALL INTESTINAL OBSTRUCTION [None]
